FAERS Safety Report 5177163-6 (Version None)
Quarter: 2006Q4

REPORT INFORMATION
  Report Type: 
  Country: None (occurrence: None)
  Receive Date: 20061218
  Receipt Date: 20061206
  Transmission Date: 20070319
  Serious: Yes (Hospitalization)
  Sender: FDA-Public Use
  Company Number: PHRM2006FR03254

PATIENT
  Age: 69 Year
  Sex: Female

DRUGS (5)
  1. ZOMETA [Suspect]
     Indication: METASTASES TO BONE
     Dosage: 4 MG, QMO
     Route: 042
     Dates: start: 20021220, end: 20060216
  2. AREDIA [Suspect]
     Indication: METASTASES TO BONE
     Dosage: TOTAL DOSE : 180 MG
     Route: 042
     Dates: start: 20060309, end: 20060330
  3. HERCEPTIN [Concomitant]
     Indication: BREAST CANCER METASTATIC
     Dates: start: 20050701
  4. NEURONTIN [Concomitant]
  5. CLASTOBAN [Concomitant]
     Dates: start: 20060601

REACTIONS (12)
  - ABSCESS DRAINAGE [None]
  - ABSCESS ORAL [None]
  - ASPERGILLOMA [None]
  - ASPERGILLOSIS ORAL [None]
  - BACTERIAL INFECTION [None]
  - COMPUTERISED TOMOGRAM ABNORMAL [None]
  - GINGIVAL SWELLING [None]
  - OSTEONECROSIS [None]
  - SINUS OPERATION [None]
  - TOOTH ABSCESS [None]
  - TOOTH EXTRACTION [None]
  - WOUND DEBRIDEMENT [None]
